FAERS Safety Report 7584298-7 (Version None)
Quarter: 2011Q2

REPORT INFORMATION
  Report Type: 
  Country: None (occurrence: None)
  Receive Date: 20110630
  Receipt Date: 20110621
  Transmission Date: 20111010
  Serious: Yes (Hospitalization)
  Sender: FDA-Public Use
  Company Number: PHHY2011BA44704

PATIENT
  Age: 30 Year
  Sex: Female
  Weight: 54 kg

DRUGS (2)
  1. FLUIMUKAN [Suspect]
  2. AMOXICILLIN [Suspect]
     Dosage: 5 DF, ALL TOGETHER
     Route: 048
     Dates: start: 20110519, end: 20110521

REACTIONS (11)
  - POLYSEROSITIS [None]
  - PERICARDIAL EFFUSION [None]
  - ABDOMINAL PAIN [None]
  - ASCITES [None]
  - WEIGHT INCREASED [None]
  - SWELLING FACE [None]
  - PLEURAL EFFUSION [None]
  - COMA [None]
  - OEDEMA PERIPHERAL [None]
  - NAUSEA [None]
  - MALAISE [None]
